FAERS Safety Report 8173283-2 (Version None)
Quarter: 2012Q1

REPORT INFORMATION
  Report Type: 
  Country: None (occurrence: None)
  Receive Date: 20120229
  Receipt Date: 20120220
  Transmission Date: 20120608
  Serious: Yes (Other)
  Sender: FDA-Public Use
  Company Number: SE-TEVA-324430ISR

PATIENT
  Age: 67 Year
  Sex: Female

DRUGS (1)
  1. OXAZEPAM [Suspect]
     Route: 048

REACTIONS (1)
  - CONVULSION [None]
